FAERS Safety Report 18578501 (Version 1)
Quarter: 2020Q4

REPORT INFORMATION
  Report Type: Spontaneous
  Country: GB (occurrence: GB)
  Receive Date: 20201204
  Receipt Date: 20201204
  Transmission Date: 20210114
  Serious: Yes (Other)
  Sender: FDA-Public Use
  Company Number: GB-AUROBINDO-AUR-APL-2020-059111

PATIENT
  Age: 36 Year
  Sex: Female
  Weight: 80.05 kg

DRUGS (10)
  1. DERMOVATE [Suspect]
     Active Substance: CLOBETASOL
     Indication: GRAFT VERSUS HOST DISEASE
     Dosage: UNK (ONGOING, PRN (WHEN NECESSARY).)
     Route: 061
     Dates: start: 20200701
  2. GABAPENTIN. [Suspect]
     Active Substance: GABAPENTIN
     Indication: NEUROPATHY PERIPHERAL
     Dosage: UNK
     Route: 065
  3. PENTAMIDINE ISETIONATE [Suspect]
     Active Substance: PENTAMIDINE ISETHIONATE
     Indication: PROPHYLAXIS
     Dosage: 300 MILLIGRAM (PREVIOUS DOSE)
     Route: 042
     Dates: start: 20200416
  4. ADCAL D3 [Suspect]
     Active Substance: CALCIUM CARBONATE\CHOLECALCIFEROL
     Indication: HYPOCALCAEMIA
     Dosage: 2 UNK, ONCE A DAY (ONGOING)
     Route: 048
     Dates: start: 20200820
  5. PENTAMIDINE ISETIONATE [Suspect]
     Active Substance: PENTAMIDINE ISETHIONATE
     Dosage: 300 MILLIGRAM
     Route: 042
     Dates: start: 20201105, end: 20201105
  6. ACICLOVIR [Suspect]
     Active Substance: ACYCLOVIR
     Indication: PROPHYLAXIS
     Dosage: 600 MILLIGRAM, ONCE A DAY (ONGOING.)
     Route: 048
     Dates: start: 20191126
  7. ERYTHROMYCIN. [Suspect]
     Active Substance: ERYTHROMYCIN
     Indication: HYPOSPLENISM
     Dosage: 500 MILLIGRAM, ONCE A DAY (ONGOING.)
     Route: 048
     Dates: start: 20200621
  8. GABAPENTIN. [Suspect]
     Active Substance: GABAPENTIN
     Indication: PAIN OF SKIN
     Dosage: 2700 MILLIGRAM, ONCE A DAY (ONGOING.)
     Route: 048
     Dates: start: 20200729
  9. SODIUM CHLORIDE. [Suspect]
     Active Substance: SODIUM CHLORIDE
     Indication: PRODUCT USED FOR UNKNOWN INDICATION
     Dosage: UNK
     Route: 042
     Dates: start: 20201105, end: 20201105
  10. PENTAMIDINE ISETIONATE [Suspect]
     Active Substance: PENTAMIDINE ISETHIONATE
     Indication: NEUTROPENIA
     Dosage: 300 MILLIGRAM (PREVIOUS DOSE.)
     Route: 042
     Dates: start: 20200624

REACTIONS (1)
  - Injection site erythema [Recovered/Resolved]

NARRATIVE: CASE EVENT DATE: 20201105
